FAERS Safety Report 7919825-0 (Version None)
Quarter: 2011Q4

REPORT INFORMATION
  Report Type: 
  Country: None (occurrence: None)
  Receive Date: 20111117
  Receipt Date: 20111117
  Transmission Date: 20120403
  Serious: Yes (Hospitalization, Other)
  Sender: FDA-Public Use
  Company Number: None

PATIENT
  Age: 71 Year
  Sex: Female
  Weight: 61.688 kg

DRUGS (2)
  1. ARICEPT [Suspect]
     Indication: COGNITIVE DISORDER
     Dosage: 5 MG
  2. TRAZODONE HCL [Concomitant]
     Dosage: ?25 MG

REACTIONS (6)
  - ATRIAL FIBRILLATION [None]
  - INSOMNIA [None]
  - FALL [None]
  - ANXIETY [None]
  - BLOOD PRESSURE DECREASED [None]
  - DIZZINESS [None]
